FAERS Safety Report 7603164-1 (Version None)
Quarter: 2011Q3

REPORT INFORMATION
  Report Type: 
  Country: None (occurrence: None)
  Receive Date: 20110701
  Receipt Date: 20110617
  Transmission Date: 20111222
  Serious: Yes (Other)
  Sender: FDA-Public Use
  Company Number: AUR-APL-2011-03327

PATIENT
  Sex: Male

DRUGS (4)
  1. CEFALEXIN (CEFALEXIN) [Suspect]
     Indication: URINARY TRACT INFECTION
     Dosage: (500 MG), TRANSPLACENTAL
     Route: 064
     Dates: start: 20090226, end: 20090301
  2. GYNO-PEVARYL (ECONAZOLE NITRATE) [Suspect]
     Indication: CANDIDIASIS
     Dosage: 150 MG, TRANSPLACENTAL
     Route: 064
     Dates: start: 20090522, end: 20090522
  3. FERROUS SULFATE TAB [Suspect]
     Indication: ANAEMIA
     Dosage: (200 MG),  TRANSPLACENTAL
     Route: 064
     Dates: start: 20090608, end: 20090831
  4. M-M-RVAXPRO (MEASLES, MUMPS AND RUBELLA VACCINE) [Suspect]
     Indication: IMMUNISATION
     Dosage: TRANSPLACENTAL
     Route: 064
     Dates: start: 20081112, end: 20081112

REACTIONS (6)
  - HIP DYSPLASIA [None]
  - BRONCHIOLITIS [None]
  - THELITIS [None]
  - MATERNAL DRUGS AFFECTING FOETUS [None]
  - BREECH PRESENTATION [None]
  - TRANSIENT TACHYPNOEA OF THE NEWBORN [None]
